FAERS Safety Report 19643031 (Version 3)
Quarter: 2021Q3

REPORT INFORMATION
  Report Type: Report from Study
  Country: US (occurrence: US)
  Receive Date: 20210731
  Receipt Date: 20210827
  Transmission Date: 20211014
  Serious: No
  Sender: FDA-Public Use
  Company Number: NVSC2021US171058

PATIENT
  Sex: Female

DRUGS (1)
  1. ENTRESTO [Suspect]
     Active Substance: SACUBITRIL\VALSARTAN
     Indication: PRODUCT USED FOR UNKNOWN INDICATION
     Dosage: 50 MG (24/26 MG), BID, STARTED TAKING {1 MONTH AGO
     Route: 048

REACTIONS (4)
  - Feeling cold [Unknown]
  - Pleural effusion [Unknown]
  - Dyspnoea [Unknown]
  - Visual impairment [Unknown]
